FAERS Safety Report 21978690 (Version 3)
Quarter: 2023Q2

REPORT INFORMATION
  Report Type: Spontaneous
  Country: JP (occurrence: JP)
  Receive Date: 20230210
  Receipt Date: 20230518
  Transmission Date: 20230722
  Serious: Yes (Death, Hospitalization)
  Sender: FDA-Public Use
  Company Number: JP-ELI_LILLY_AND_COMPANY-JP202302004317

PATIENT
  Age: 72 Year
  Sex: Male
  Weight: 45.2 kg

DRUGS (6)
  1. TALTZ [Suspect]
     Active Substance: IXEKIZUMAB
     Indication: Axial spondyloarthritis
     Dosage: 80 MG /4WEEKS
     Route: 058
     Dates: start: 20201217, end: 202208
  2. TALTZ [Suspect]
     Active Substance: IXEKIZUMAB
     Dosage: UNK
     Dates: start: 202209, end: 20221108
  3. VONOPRAZAN FUMARATE [Concomitant]
     Active Substance: VONOPRAZAN FUMARATE
     Indication: Gastrooesophageal reflux disease
     Dosage: 20 MG
     Route: 048
  4. CELECOXIB [Concomitant]
     Active Substance: CELECOXIB
     Indication: Spondylitis
     Dosage: 400 MG
     Route: 048
  5. PREDNISOLONE [Concomitant]
     Active Substance: PREDNISOLONE
     Indication: Spondylitis
     Dosage: 10 MG
     Route: 048
  6. MONTELUKAST [Concomitant]
     Active Substance: MONTELUKAST SODIUM
     Indication: Rhinitis allergic
     Dosage: 10 MG
     Route: 048
     Dates: start: 20221108

REACTIONS (2)
  - Pneumonia aspiration [Fatal]
  - Bronchitis [Recovering/Resolving]

NARRATIVE: CASE EVENT DATE: 20221211
